FAERS Safety Report 8836553 (Version 1)
Quarter: 2012Q4

REPORT INFORMATION
  Report Type: 
  Country: US (occurrence: None)
  Receive Date: 20121009
  Receipt Date: 20121009
  Transmission Date: 20130627
  Serious: Yes (Other)
  Sender: FDA-Public Use
  Company Number: 2012MA011730

PATIENT
  Age: 11 Month
  Sex: Male

DRUGS (1)
  1. NIFEDIPINE [Suspect]
     Route: 048
     Dates: start: 20120626

REACTIONS (1)
  - Accidental exposure to product [None]
